FAERS Safety Report 4576902-2 (Version None)
Quarter: 2005Q1

REPORT INFORMATION
  Report Type: 
  Country: None (occurrence: None)
  Receive Date: 20050207
  Receipt Date: 20050126
  Transmission Date: 20050727
  Serious: Yes (Hospitalization)
  Sender: FDA-Public Use
  Company Number: 2005UW01504

PATIENT
  Age: 36 Year
  Sex: Female

DRUGS (7)
  1. TOPROL-XL [Suspect]
     Dosage: 100 MG PO
     Route: 048
  2. SEROQUEL [Suspect]
     Indication: AGGRESSION
     Dosage: 100 MG PO
     Route: 048
     Dates: start: 20041215, end: 20050125
  3. BENADRYL [Suspect]
  4. CLONAPIN [Concomitant]
  5. TAPAZOLE [Concomitant]
  6. LEXAPRO [Concomitant]
  7. RISPERDAL [Concomitant]

REACTIONS (3)
  - DRUG INTERACTION [None]
  - NEUROLEPTIC MALIGNANT SYNDROME [None]
  - RASH [None]
